FAERS Safety Report 14426092 (Version 2)
Quarter: 2018Q1

REPORT INFORMATION
  Report Type: Spontaneous
  Country: US (occurrence: US)
  Receive Date: 20180123
  Receipt Date: 20180126
  Transmission Date: 20180509
  Serious: No
  Sender: FDA-Public Use
  Company Number: US-VIFOR (INTERNATIONAL) INC.-VIT-2017-14448

PATIENT
  Age: 54 Year
  Sex: Male
  Weight: 63.5 kg

DRUGS (15)
  1. NIFEDIPINE. [Concomitant]
     Active Substance: NIFEDIPINE
     Dates: start: 20170721
  2. NEXIUM [Concomitant]
     Active Substance: ESOMEPRAZOLE MAGNESIUM
     Route: 048
     Dates: start: 20140606
  3. MIRCERA [Suspect]
     Active Substance: METHOXY POLYETHYLENE GLYCOL-EPOETIN BETA
     Dosage: 225 MCG/0.3 ML
     Route: 040
     Dates: start: 20171121
  4. SERTRALINE [Concomitant]
     Active Substance: SERTRALINE HYDROCHLORIDE
     Dates: start: 20170421
  5. SIMVASTATIN. [Concomitant]
     Active Substance: SIMVASTATIN
     Dates: start: 20170328
  6. EMLA [Concomitant]
     Active Substance: LIDOCAINE\PRILOCAINE
     Route: 061
     Dates: start: 20171004
  7. LORAZEPAM. [Concomitant]
     Active Substance: LORAZEPAM
     Dates: start: 20170421
  8. MIRCERA [Suspect]
     Active Substance: METHOXY POLYETHYLENE GLYCOL-EPOETIN BETA
     Indication: PRODUCT USED FOR UNKNOWN INDICATION
     Dosage: 225 MCG/0.3 ML
     Route: 040
     Dates: start: 20171118
  9. TUBERSOL [Concomitant]
     Active Substance: TUBERCULIN PURIFIED PROTEIN DERIVATIVE
     Route: 023
     Dates: start: 20171213
  10. VENOFER [Concomitant]
     Active Substance: IRON SUCROSE
     Route: 040
     Dates: start: 20170715
  11. HYDRALAZINE [Concomitant]
     Active Substance: HYDRALAZINE HYDROCHLORIDE
     Dates: start: 20170421
  12. PHOSLO [Concomitant]
     Active Substance: CALCIUM ACETATE
     Dates: start: 20150225
  13. ZOLPIDEM [Concomitant]
     Active Substance: ZOLPIDEM\ZOLPIDEM TARTRATE
     Route: 048
     Dates: start: 20140606
  14. ZEMPLAR [Concomitant]
     Active Substance: PARICALCITOL
     Route: 042
     Dates: start: 20170718
  15. ALPRAZOLAM. [Concomitant]
     Active Substance: ALPRAZOLAM
     Dates: start: 20170504

REACTIONS (1)
  - Off label use [Recovered/Resolved]

NARRATIVE: CASE EVENT DATE: 20171127
